FAERS Safety Report 14638393 (Version 1)
Quarter: 2018Q1

REPORT INFORMATION
  Report Type: Spontaneous
  Country: US (occurrence: US)
  Receive Date: 20180314
  Receipt Date: 20180314
  Transmission Date: 20180509
  Serious: Yes (Other)
  Sender: FDA-Public Use
  Company Number: US-PFIZER INC-2018102908

PATIENT
  Sex: Female

DRUGS (1)
  1. IBRANCE [Suspect]
     Active Substance: PALBOCICLIB
     Indication: GASTRIC CANCER STAGE IV
     Dosage: 125 MG, UNK

REACTIONS (2)
  - Product use in unapproved indication [Unknown]
  - Neutropenia [Recovered/Resolved]
